FAERS Safety Report 12983133 (Version 1)
Quarter: 2016Q4

REPORT INFORMATION
  Report Type: Spontaneous
  Country: US (occurrence: US)
  Receive Date: 20161129
  Receipt Date: 20161129
  Transmission Date: 20170207
  Serious: Yes (Hospitalization)
  Sender: FDA-Public Use
  Company Number: US-MALLINCKRODT-T201603412

PATIENT
  Age: 25 Year
  Sex: Female
  Weight: 66 kg

DRUGS (5)
  1. AMITRIPTYLINE [Concomitant]
     Active Substance: AMITRIPTYLINE
  2. AMBIEN [Concomitant]
     Active Substance: ZOLPIDEM TARTRATE
  3. FENTANYL TRANSDERMAL SYSTEM [Suspect]
     Active Substance: FENTANYL
     Dosage: 25 ?G/HR, ONE PATCH Q3D
     Route: 062
  4. HYDROCODONE [Concomitant]
     Active Substance: HYDROCODONE
  5. FENTANYL TRANSDERMAL SYSTEM [Suspect]
     Active Substance: FENTANYL
     Indication: TRIGEMINAL NEURALGIA
     Dosage: 75 ?G/HR, ONE PATCH Q3D
     Route: 062
     Dates: start: 201601

REACTIONS (4)
  - Drug effect decreased [Unknown]
  - Drug dose omission [Recovered/Resolved]
  - Drug withdrawal syndrome [Unknown]
  - Product adhesion issue [Not Recovered/Not Resolved]

NARRATIVE: CASE EVENT DATE: 201601
